FAERS Safety Report 6611992-4 (Version None)
Quarter: 2010Q1

REPORT INFORMATION
  Report Type: 
  Country: None (occurrence: None)
  Receive Date: 20100303
  Receipt Date: 20100222
  Transmission Date: 20100710
  Serious: Yes (Other)
  Sender: FDA-Public Use
  Company Number: GXKR2010IT02247

PATIENT
  Sex: Female

DRUGS (4)
  1. ALLOPURINOL SANDOZ (NGX) [Suspect]
     Route: 048
  2. RISPERDAL [Suspect]
     Route: 048
  3. TAVANIC [Suspect]
     Route: 048
  4. CORTISONE [Concomitant]

REACTIONS (1)
  - SELF INJURIOUS BEHAVIOUR [None]
